FAERS Safety Report 8219560-8 (Version None)
Quarter: 2012Q1

REPORT INFORMATION
  Report Type: 
  Country: None (occurrence: None)
  Receive Date: 20120319
  Receipt Date: 20120312
  Transmission Date: 20120608
  Serious: Yes (Death, Hospitalization)
  Sender: FDA-Public Use
  Company Number: US-BRISTOL-MYERS SQUIBB COMPANY-14892855

PATIENT
  Age: 43 Year
  Sex: Male
  Weight: 138 kg

DRUGS (4)
  1. ERBITUX [Suspect]
     Indication: NON-SMALL CELL LUNG CANCER
     Dosage: LAST ADMINISTERED ON 07DEC2009
     Dates: start: 20091019, end: 20091207
  2. HEPARIN SODIUM [Suspect]
  3. CARBOPLATIN [Suspect]
     Indication: NON-SMALL CELL LUNG CANCER
     Dates: start: 20091019, end: 20091130
  4. TAXOL [Suspect]
     Indication: NON-SMALL CELL LUNG CANCER
     Dates: start: 20091019, end: 20091130

REACTIONS (7)
  - ENDOCARDITIS STAPHYLOCOCCAL [None]
  - THROMBOCYTOPENIA [None]
  - NEOPLASM MALIGNANT [None]
  - DYSPNOEA [None]
  - SEPSIS [None]
  - BACTERAEMIA [None]
  - PLEURAL EFFUSION [None]
